FAERS Safety Report 9103747 (Version 3)
Quarter: 2013Q3

REPORT INFORMATION
  Report Type: Spontaneous
  Country: BR (occurrence: BR)
  Receive Date: 20130219
  Receipt Date: 20130819
  Transmission Date: 20140515
  Serious: Yes (Hospitalization, Other)
  Sender: FDA-Public Use
  Company Number: BR-AMGEN-BRACT2011069614

PATIENT
  Age: 57 Year
  Sex: Female
  Weight: 83 kg

DRUGS (21)
  1. ENBREL [Suspect]
     Indication: RHEUMATOID ARTHRITIS
     Dosage: UNK
     Route: 058
     Dates: start: 201102
  2. ENBREL [Suspect]
     Dosage: 50 MG ONCE EVERY 15 DAYS
     Route: 065
     Dates: start: 2012
  3. METHOTREXATE [Concomitant]
     Dosage: UNK
  4. SYNTHROID [Concomitant]
     Indication: HYPERTENSION
     Dosage: 100 MG, 1X/DAY
     Route: 048
  5. SYNTHROID [Concomitant]
     Indication: INFARCTION
  6. SYNTHROID [Concomitant]
     Indication: HYPOTHYROIDISM
  7. RENITEC                            /00574902/ [Concomitant]
     Dosage: UNK
  8. CARVEDILOL [Concomitant]
     Indication: HYPERTENSION
     Dosage: UNK
  9. CARVEDILOL [Concomitant]
     Indication: INFARCTION
     Dosage: UNK
  10. LIPITOR [Concomitant]
     Dosage: UNK
  11. PLAVIX [Concomitant]
     Indication: HYPERTENSION
     Dosage: 75 MG, 1X/DAY
  12. PLAVIX [Concomitant]
     Indication: INFARCTION
     Dosage: UNK
  13. PLAVIX [Concomitant]
     Indication: ANTICOAGULANT THERAPY
     Dosage: UNK
  14. OLMETEC [Concomitant]
     Indication: HYPERTENSION
     Dosage: UNK
  15. OLMETEC [Concomitant]
     Indication: INFARCTION
     Dosage: UNK MG, QD
     Route: 048
  16. CITALOR [Concomitant]
     Indication: HYPERTENSION
     Dosage: UNK
  17. CITALOR [Concomitant]
     Indication: INFARCTION
     Dosage: 1 DF, 1X/DAY
  18. CITALOR [Concomitant]
     Indication: BLOOD CHOLESTEROL
  19. ASPIRINA PREVENT [Concomitant]
     Dosage: UNKNOWN
  20. ALDACTONE                          /00006201/ [Concomitant]
     Dosage: UNK
  21. PANTOPRAZOL [Concomitant]
     Dosage: 40 MG, 1X/DAY
     Route: 048

REACTIONS (9)
  - Pyrexia [Unknown]
  - Chills [Unknown]
  - Injection site erythema [Unknown]
  - Injection site pruritus [Unknown]
  - Injection site pain [Unknown]
  - Injection site warmth [Unknown]
  - Arthralgia [Not Recovered/Not Resolved]
  - Infarction [Unknown]
  - Fatigue [Unknown]
